APPROVED DRUG PRODUCT: PHENYLEPHRINE HYDROCHLORIDE
Active Ingredient: PHENYLEPHRINE HYDROCHLORIDE
Strength: 100MG/10ML (10MG/ML)
Dosage Form/Route: SOLUTION;INTRAVENOUS
Application: A210666 | Product #002 | TE Code: AP1
Applicant: FRESENIUS KABI USA LLC
Approved: Jan 30, 2019 | RLD: No | RS: No | Type: RX